FAERS Safety Report 9934166 (Version 1)
Quarter: 2014Q1

REPORT INFORMATION
  Report Type: Report from Study
  Country: US (occurrence: US)
  Receive Date: 20140228
  Receipt Date: 20140228
  Transmission Date: 20141002
  Serious: No
  Sender: FDA-Public Use
  Company Number: US-ABBVIE-14P-163-1197105-00

PATIENT
  Sex: Male

DRUGS (2)
  1. ANDROGEL [Suspect]
     Indication: PRODUCT USED FOR UNKNOWN INDICATION
     Dosage: 1 PUMP DAILY
     Route: 061
     Dates: start: 201312, end: 201401
  2. ANDROGEL [Suspect]
     Dosage: 2 PUMPS DAILY
     Route: 061
     Dates: start: 201401

REACTIONS (1)
  - Blood testosterone decreased [Not Recovered/Not Resolved]
